FAERS Safety Report 9247344 (Version 1)
Quarter: 2013Q2

REPORT INFORMATION
  Report Type: Spontaneous
  Country: DK (occurrence: DK)
  Receive Date: 20130423
  Receipt Date: 20130423
  Transmission Date: 20140414
  Serious: Yes (Other)
  Sender: FDA-Public Use
  Company Number: DK-JNJFOC-20130407247

PATIENT
  Age: 34 Year
  Sex: Male
  Weight: 98 kg

DRUGS (9)
  1. PALIPERIDONE PALMITATE [Suspect]
     Indication: PSYCHOTIC DISORDER
     Route: 030
  2. PALIPERIDONE PALMITATE [Suspect]
     Indication: PSYCHOTIC DISORDER
     Route: 030
  3. PALIPERIDONE PALMITATE [Suspect]
     Indication: PSYCHOTIC DISORDER
     Route: 030
     Dates: start: 20130131, end: 20130321
  4. LACTULOSE [Concomitant]
     Indication: CONSTIPATION
     Route: 065
     Dates: start: 20090720
  5. LEPONEX [Concomitant]
     Indication: PSYCHOTIC DISORDER
     Route: 065
     Dates: start: 20081001
  6. LYSANTIN [Concomitant]
     Indication: ADVERSE DRUG REACTION
     Route: 065
     Dates: start: 20090720
  7. CITALOPRAM HYDROBROMIDE [Concomitant]
     Indication: DEPRESSION
     Route: 065
     Dates: start: 20110408
  8. MIANSERIN HYDROCHLORIDE [Concomitant]
     Indication: DEPRESSION
     Route: 065
     Dates: start: 20120111
  9. QUETIAPINE FUMARATE [Concomitant]
     Indication: PSYCHOTIC DISORDER
     Route: 065
     Dates: start: 20081202

REACTIONS (1)
  - Buccoglossal syndrome [Not Recovered/Not Resolved]
